FAERS Safety Report 12802975 (Version 1)
Quarter: 2016Q4

REPORT INFORMATION
  Report Type: Spontaneous
  Country: US (occurrence: US)
  Receive Date: 20161003
  Receipt Date: 20161003
  Transmission Date: 20170207
  Serious: No
  Sender: FDA-Public Use
  Company Number: US-PFIZER INC-2016036617

PATIENT
  Age: 50 Year
  Sex: Female

DRUGS (2)
  1. FASLODEX [Concomitant]
     Active Substance: FULVESTRANT
  2. IBRANCE [Suspect]
     Active Substance: PALBOCICLIB
     Dosage: 125 MG, CYCLIC(1 CAPSULE DAILY FOR 21 DAYS FOLLOWED BY 7 DAY REST (CYCLE 28 DAYS)
     Route: 048

REACTIONS (1)
  - Blood count abnormal [Unknown]
